FAERS Safety Report 11704641 (Version 1)
Quarter: 2015Q4

REPORT INFORMATION
  Report Type: Spontaneous
  Country: US (occurrence: US)
  Receive Date: 20151106
  Receipt Date: 20151106
  Transmission Date: 20160304
  Serious: Yes (Other)
  Sender: FDA-Public Use
  Company Number: US-BEH-2015055155

PATIENT
  Age: 71 Year
  Sex: Male

DRUGS (2)
  1. INTRAVENOUS IMMUNOGLOBULIN [Suspect]
     Active Substance: HUMAN IMMUNOGLOBULIN G
     Indication: ENCEPHALITIS AUTOIMMUNE
     Dosage: 2 G/KG
     Route: 042
  2. METHYLPREDNISOLONE. [Suspect]
     Active Substance: METHYLPREDNISOLONE
     Indication: ENCEPHALITIS AUTOIMMUNE
     Route: 042

REACTIONS (11)
  - Activities of daily living impaired [Not Recovered/Not Resolved]
  - Delirium [Not Recovered/Not Resolved]
  - Euphoric mood [Not Recovered/Not Resolved]
  - Dementia [Not Recovered/Not Resolved]
  - Delusion [Not Recovered/Not Resolved]
  - Cognitive disorder [Not Recovered/Not Resolved]
  - Parkinsonian gait [Not Recovered/Not Resolved]
  - Hallucination [Not Recovered/Not Resolved]
  - Drug ineffective for unapproved indication [Not Recovered/Not Resolved]
  - Encephalitis autoimmune [Not Recovered/Not Resolved]
  - Neurological decompensation [Not Recovered/Not Resolved]
